FAERS Safety Report 5948220-9 (Version None)
Quarter: 2008Q4

REPORT INFORMATION
  Report Type: 
  Country: None (occurrence: None)
  Receive Date: 20081111
  Receipt Date: 20081028
  Transmission Date: 20090506
  Serious: Yes (Disabling, Other)
  Sender: FDA-Public Use
  Company Number: US-ELI_LILLY_AND_COMPANY-US200810006725

PATIENT
  Age: 41 Year
  Sex: Male

DRUGS (3)
  1. ALIMTA [Suspect]
     Indication: LUNG NEOPLASM MALIGNANT
     Dosage: UNK, UNK
     Dates: start: 20080101
  2. VITAMIN B COMPLEX CAP [Concomitant]
  3. ASCORBIC ACID [Concomitant]

REACTIONS (11)
  - ANGER [None]
  - DISCOMFORT [None]
  - FATIGUE [None]
  - HYPOAESTHESIA [None]
  - INSOMNIA [None]
  - PARAESTHESIA [None]
  - RASH ERYTHEMATOUS [None]
  - RASH PRURITIC [None]
  - RASH VESICULAR [None]
  - SUICIDAL IDEATION [None]
  - THINKING ABNORMAL [None]
